FAERS Safety Report 16300992 (Version 1)
Quarter: 2019Q2

REPORT INFORMATION
  Report Type: Report from Study
  Country: US (occurrence: US)
  Receive Date: 20190510
  Receipt Date: 20190510
  Transmission Date: 20190711
  Serious: Yes (Hospitalization, Other)
  Sender: FDA-Public Use
  Company Number: US-PFIZER INC-2019194866

PATIENT
  Age: 55 Year
  Sex: Male

DRUGS (80)
  1. BACTRIM [Concomitant]
     Active Substance: SULFAMETHOXAZOLE\TRIMETHOPRIM
  2. MIRTAZAPINE. [Concomitant]
     Active Substance: MIRTAZAPINE
  3. DOPAMINE [Concomitant]
     Active Substance: DOPAMINE\DOPAMINE HYDROCHLORIDE
  4. FUROSEMIDE. [Concomitant]
     Active Substance: FUROSEMIDE
  5. AZITHROMYCIN ANHYDROUS. [Concomitant]
     Active Substance: AZITHROMYCIN ANHYDROUS
  6. BLINDED THERAPY [Suspect]
     Active Substance: INVESTIGATIONAL PRODUCT
     Dosage: 29 ML, SINGLE
     Route: 042
     Dates: start: 20160608
  7. ISOSORBIDE MONONITRATE. [Concomitant]
     Active Substance: ISOSORBIDE MONONITRATE
  8. ACETAMINOPHEN. [Concomitant]
     Active Substance: ACETAMINOPHEN
  9. MELATONIN [Concomitant]
     Active Substance: MELATONIN
  10. ROXICODONE [Concomitant]
     Active Substance: OXYCODONE HYDROCHLORIDE
  11. ZANAFLEX [Concomitant]
     Active Substance: TIZANIDINE HYDROCHLORIDE
  12. MYCOSTATIN [Concomitant]
     Active Substance: NYSTATIN
  13. CALCIUM CHLORIDE. [Concomitant]
     Active Substance: CALCIUM CHLORIDE
  14. NORMAL SALINE [Concomitant]
     Active Substance: SODIUM CHLORIDE
  15. ZOSYN [Concomitant]
     Active Substance: PIPERACILLIN SODIUM\TAZOBACTAM SODIUM
  16. CELLCEPT [Concomitant]
     Active Substance: MYCOPHENOLATE MOFETIL\MYCOPHENOLATE MOFETIL HYDROCHLORIDE
  17. ATORVASTATIN [Concomitant]
     Active Substance: ATORVASTATIN
  18. VALGANCICLOVIR HCL [Concomitant]
  19. SIMETHICONE (DIMETHICONE) [Concomitant]
     Active Substance: DIMETHICONE
  20. LUCOL [Concomitant]
  21. CHLORHEXIDINE [Concomitant]
     Active Substance: CHLORHEXIDINE
  22. IMDUR [Concomitant]
     Active Substance: ISOSORBIDE MONONITRATE
  23. METHYLPREDNISOLONE. [Concomitant]
     Active Substance: METHYLPREDNISOLONE
  24. ANTITHYMOCYTE IMMUNOGLOBULIN (RABBIT) [Concomitant]
     Active Substance: LAPINE T-LYMPHOCYTE IMMUNE GLOBULIN
  25. RAPAMUNE [Suspect]
     Active Substance: SIROLIMUS
  26. PROGRAF [Suspect]
     Active Substance: TACROLIMUS\TACROLIMUS ANHYDROUS
  27. COREG [Concomitant]
     Active Substance: CARVEDILOL
  28. MIDAZOLAM [Concomitant]
     Active Substance: MIDAZOLAM HYDROCHLORIDE
  29. PRECEDEX [Concomitant]
     Active Substance: DEXMEDETOMIDINE HYDROCHLORIDE
  30. SENOKOT [Concomitant]
     Active Substance: SENNOSIDES
  31. ASPIRIN [ACETYLSALICYLIC ACID] [Concomitant]
     Active Substance: ASPIRIN
  32. NEPHROCAPS [ASCORBIC ACID;BIOTIN;COLECALCIFEROL;CYANOCOBALAMIN;FOLIC A [Concomitant]
  33. LASIX [Concomitant]
     Active Substance: FUROSEMIDE
  34. PHENYLEPHRINE [Concomitant]
     Active Substance: PHENYLEPHRINE\PHENYLEPHRINE HYDROCHLORIDE
  35. ANCEF [Concomitant]
     Active Substance: CEFAZOLIN SODIUM
  36. VANCOMYCIN [Concomitant]
     Active Substance: VANCOMYCIN
  37. METOLAZONE. [Concomitant]
     Active Substance: METOLAZONE
  38. MILK OF MAGNESIA [Concomitant]
     Active Substance: MAGNESIUM HYDROXIDE
  39. SUBLIMAZE [FENTANYL] [Concomitant]
  40. RED BLOOD CELLS, CONCENTRATED [Concomitant]
     Active Substance: HUMAN RED BLOOD CELL
  41. PERCOCET [Concomitant]
     Active Substance: ACETAMINOPHEN\OXYCODONE HYDROCHLORIDE
  42. HEPARIN [Concomitant]
     Active Substance: HEPARIN SODIUM
  43. VELPHORO [Concomitant]
     Active Substance: FERRIC OXYHYDROXIDE
  44. CISATRACURIUM. [Concomitant]
     Active Substance: CISATRACURIUM
  45. EPHEDRINE. [Concomitant]
     Active Substance: EPHEDRINE
  46. PLASMALYTE A [Concomitant]
  47. ALBUMIN [Concomitant]
     Active Substance: ALBUMIN HUMAN
  48. DIPHENHYDRAMINE. [Concomitant]
     Active Substance: DIPHENHYDRAMINE
  49. PEPCID [Concomitant]
     Active Substance: FAMOTIDINE
  50. DILAUDID [Concomitant]
     Active Substance: HYDROMORPHONE HYDROCHLORIDE
  51. LIDOCAINE. [Concomitant]
     Active Substance: LIDOCAINE
  52. LEXISCAN [Concomitant]
     Active Substance: REGADENOSON
  53. MAALOX [ALUMINIUM HYDROXIDE GEL;MAGNESIUM HYDROXIDE] [Concomitant]
  54. PERIDEX [CHLORHEXIDINE GLUCONATE] [Concomitant]
  55. PRAVACHOL [Concomitant]
     Active Substance: PRAVASTATIN SODIUM
  56. COENZYME Q10 [Concomitant]
     Active Substance: UBIDECARENONE
  57. HYDROMORPHONE [Concomitant]
     Active Substance: HYDROMORPHONE
  58. ONDANSETRON [Concomitant]
     Active Substance: ONDANSETRON
  59. ENEMA [GLYCEROL] [Concomitant]
  60. NIFEDIPINE. [Concomitant]
     Active Substance: NIFEDIPINE
  61. BELATACEPT [Concomitant]
     Active Substance: BELATACEPT
  62. MYFORTIC [Concomitant]
     Active Substance: MYCOPHENOLATE SODIUM
  63. SULFAMETHOXAZOLE/TRIMETHOPRIM [Suspect]
     Active Substance: SULFAMETHOXAZOLE\TRIMETHOPRIM
  64. TECHNETIUM (99M TC) SESTAMIBI [Concomitant]
     Active Substance: TECHNETIUM TC-99M SESTAMIBI
  65. CHLORHEXIDINE GLUCONATE. [Concomitant]
     Active Substance: CHLORHEXIDINE GLUCONATE
  66. COLACE [Concomitant]
     Active Substance: DOCUSATE SODIUM
  67. PHOSLO [Concomitant]
     Active Substance: CALCIUM ACETATE
  68. MANNITOL. [Concomitant]
     Active Substance: MANNITOL
  69. ESMOLOL [Concomitant]
     Active Substance: ESMOLOL HYDROCHLORIDE
  70. NEUPOGEN [Concomitant]
     Active Substance: FILGRASTIM
  71. LISINOPRIL. [Concomitant]
     Active Substance: LISINOPRIL
  72. BUMEX [Concomitant]
     Active Substance: BUMETANIDE
  73. DELTASONE [PREDNISONE] [Concomitant]
  74. SOLU-MEDROL [Concomitant]
     Active Substance: METHYLPREDNISOLONE SODIUM SUCCINATE
  75. SYMBICORT [Concomitant]
     Active Substance: BUDESONIDE\FORMOTEROL FUMARATE DIHYDRATE
  76. DULCOLAX (BISACODYL) [Concomitant]
     Active Substance: BISACODYL
  77. DIPRIVAN [Concomitant]
     Active Substance: PROPOFOL
  78. EPOETIN ALFA [Concomitant]
     Active Substance: ERYTHROPOIETIN
  79. AUGMENTIN [Concomitant]
     Active Substance: AMOXICILLIN\CLAVULANATE POTASSIUM
  80. ANTITHYMOCYTE IMMUNOGLOBULIN [Concomitant]
     Active Substance: THYMOCYTE IMMUNE GLOBULIN NOS

REACTIONS (13)
  - Fluid overload [Recovered/Resolved]
  - Cytomegalovirus viraemia [Recovered/Resolved]
  - Acute respiratory failure [Recovered/Resolved]
  - Hypoxia [Recovered/Resolved]
  - Leukopenia [Recovered/Resolved]
  - Pneumonia [Recovered/Resolved]
  - Cardiac failure congestive [Recovered/Resolved]
  - Fluid retention [Recovered/Resolved]
  - Oesophageal candidiasis [Recovered/Resolved]
  - Acute kidney injury [Recovered/Resolved]
  - Neutropenia [Recovered/Resolved]
  - Condition aggravated [Recovered/Resolved]
  - Delayed graft function [Recovered/Resolved]

NARRATIVE: CASE EVENT DATE: 20160608
